FAERS Safety Report 20317058 (Version 1)
Quarter: 2022Q1

REPORT INFORMATION
  Report Type: Spontaneous
  Country: US (occurrence: US)
  Receive Date: 20220110
  Receipt Date: 20220110
  Transmission Date: 20220423
  Serious: Yes (Hospitalization, Other)
  Sender: FDA-Public Use
  Company Number: US-ELI_LILLY_AND_COMPANY-US202201000338

PATIENT
  Age: 54 Year
  Sex: Female
  Weight: 67.574 kg

DRUGS (5)
  1. TALTZ [Suspect]
     Active Substance: IXEKIZUMAB
     Indication: Psoriasis
     Dosage: 80 MG, MONTHLY (1/M)
     Route: 058
     Dates: start: 20191127
  2. DUOBRII [Concomitant]
     Active Substance: HALOBETASOL PROPIONATE\TAZAROTENE
     Indication: Product used for unknown indication
     Dosage: UNK, UNKNOWN
  3. NOVOLOG [Concomitant]
     Active Substance: INSULIN ASPART
     Indication: Product used for unknown indication
  4. LANTUS [Concomitant]
     Active Substance: INSULIN GLARGINE
     Indication: Product used for unknown indication
  5. IBUPROFEN [Concomitant]
     Active Substance: IBUPROFEN
     Indication: Product used for unknown indication

REACTIONS (9)
  - Paronychia [Unknown]
  - Rash [Unknown]
  - Pruritus [Unknown]
  - Cyst rupture [Recovered/Resolved]
  - Hordeolum [Recovered/Resolved]
  - Cellulitis staphylococcal [Recovered/Resolved]
  - Subcutaneous abscess [Unknown]
  - Staphylococcal infection [Unknown]
  - Cyst [Unknown]

NARRATIVE: CASE EVENT DATE: 20210601
